FAERS Safety Report 17221902 (Version 1)
Quarter: 2019Q4

REPORT INFORMATION
  Report Type: Spontaneous
  Country: US (occurrence: US)
  Receive Date: 20191209
  Receipt Date: 20191209
  Transmission Date: 20200122
  Serious: No
  Sender: FDA-Public Use
  Company Number: None

PATIENT
  Age: 44 Year
  Sex: Male

DRUGS (2)
  1. COPAXONE [Suspect]
     Active Substance: GLATIRAMER ACETATE
     Route: 058
     Dates: start: 201412
  2. AUTOINJECTOR [DEVICE] [Suspect]
     Active Substance: DEVICE

REACTIONS (3)
  - Device malfunction [None]
  - Condition aggravated [None]
  - Incorrect dose administered by device [None]

NARRATIVE: CASE EVENT DATE: 20191209
